FAERS Safety Report 8190346 (Version 9)
Quarter: 2016Q2

REPORT INFORMATION
  Report Type: Spontaneous
  Country: US (occurrence: US)
  Receive Date: 20111019
  Receipt Date: 20160609
  Transmission Date: 20160815
  Serious: Yes (Other)
  Sender: FDA-Public Use
  Company Number: US-ASTRAZENECA-2011SE60994

PATIENT
  Age: 59 Year
  Sex: Female
  Weight: 56.7 kg

DRUGS (48)
  1. SEROQUEL [Suspect]
     Active Substance: QUETIAPINE FUMARATE
     Indication: BIPOLAR DISORDER
     Route: 048
  2. SEROQUEL [Suspect]
     Active Substance: QUETIAPINE FUMARATE
     Indication: BIPOLAR DISORDER
     Route: 048
     Dates: start: 1999, end: 2014
  3. SEROQUEL XR [Suspect]
     Active Substance: QUETIAPINE FUMARATE
     Indication: BIPOLAR DISORDER
     Dosage: 400.0MG UNKNOWN
     Route: 048
     Dates: end: 201501
  4. CELEXA [Concomitant]
     Active Substance: CITALOPRAM HYDROBROMIDE
     Indication: CEREBRAL DISORDER
     Dosage: GENERIC CITALOPRAM TABLETS 40 MG DAILY
     Route: 048
  5. CITALOPRAM HYDROBROMIDE. [Concomitant]
     Active Substance: CITALOPRAM HYDROBROMIDE
     Indication: ADJUVANT THERAPY
     Route: 048
  6. CITALOPRAM HYDROBROMIDE. [Concomitant]
     Active Substance: CITALOPRAM HYDROBROMIDE
     Indication: CEREBRAL DISORDER
     Route: 048
  7. CITALOPRAM HYDROBROMIDE. [Concomitant]
     Active Substance: CITALOPRAM HYDROBROMIDE
     Indication: BIPOLAR DISORDER
     Dosage: GENERIC, 40 MG DAILY
  8. MAGNESIUM CITRATE. [Concomitant]
     Active Substance: MAGNESIUM CITRATE
     Indication: LAXATIVE SUPPORTIVE CARE
     Dosage: WEEKLY
  9. ARIMIDEX [Suspect]
     Active Substance: ANASTROZOLE
     Indication: BREAST CANCER
     Route: 048
     Dates: start: 200908
  10. VITAMIN D [Concomitant]
     Active Substance: CHOLECALCIFEROL
     Indication: BLOOD IRON ABNORMAL
     Dosage: DAILY
     Route: 048
  11. PULMICORT FLEXHALER [Suspect]
     Active Substance: BUDESONIDE
     Indication: CHRONIC OBSTRUCTIVE PULMONARY DISEASE
     Dosage: 2 PUFFS TWICE DAILY
     Route: 055
  12. SEROQUEL [Suspect]
     Active Substance: QUETIAPINE FUMARATE
     Indication: BIPOLAR DISORDER
     Route: 048
     Dates: start: 2006
  13. HYDROCODONE [Concomitant]
     Active Substance: HYDROCODONE
     Indication: ARTHRITIS
     Dosage: 10-325MG UP TO 3 A DAY
     Dates: start: 2006
  14. CITALOPRAM HYDROBROMIDE. [Concomitant]
     Active Substance: CITALOPRAM HYDROBROMIDE
     Indication: ADJUVANT THERAPY
     Dosage: GENERIC, 40 MG DAILY
  15. CITALOPRAM HYDROBROMIDE. [Concomitant]
     Active Substance: CITALOPRAM HYDROBROMIDE
     Indication: CEREBRAL DISORDER
     Dosage: GENERIC, 40 MG DAILY
  16. POTASSIUM [Concomitant]
     Active Substance: POTASSIUM
     Indication: ARTHRITIS
     Dates: start: 201604
  17. SYMBICORT [Suspect]
     Active Substance: BUDESONIDE\FORMOTEROL FUMARATE DIHYDRATE
     Indication: CHRONIC OBSTRUCTIVE PULMONARY DISEASE
     Dosage: TWO PUFFS TWICE DAILY
     Route: 055
     Dates: start: 2015
  18. LORTAB [Concomitant]
     Active Substance: ACETAMINOPHEN\HYDROCODONE BITARTRATE
  19. HYDROCODONE [Concomitant]
     Active Substance: HYDROCODONE
     Indication: ARTHRITIS
     Dosage: 7.5/325 MG, 1 TO 2 TIMES A DAY FOR ARTHRITIS, EVEN THOUGH SHE CAN TAKE IT UP TO FOUR TIMES A DAY AS
     Route: 048
     Dates: start: 2012
  20. RED YEAST RICE [Concomitant]
     Active Substance: DIETARY SUPPLEMENT
     Indication: BLOOD CHOLESTEROL ABNORMAL
     Route: 048
     Dates: start: 2009
  21. CALCIUM 1000 [Concomitant]
     Indication: BREAST CANCER FEMALE
  22. CRESTOR [Suspect]
     Active Substance: ROSUVASTATIN CALCIUM
     Route: 048
  23. CITALOPRAM HYDROBROMIDE. [Concomitant]
     Active Substance: CITALOPRAM HYDROBROMIDE
     Indication: BIPOLAR DISORDER
     Route: 048
  24. ALPRAZOLAM. [Concomitant]
     Active Substance: ALPRAZOLAM
     Indication: PANIC ATTACK
     Route: 048
     Dates: start: 201412
  25. REMIDEX [Concomitant]
     Active Substance: ANASTROZOLE
     Indication: NEOPLASM MALIGNANT
     Dates: start: 200908
  26. SYMBICORT [Suspect]
     Active Substance: BUDESONIDE\FORMOTEROL FUMARATE DIHYDRATE
     Indication: CHRONIC OBSTRUCTIVE PULMONARY DISEASE
     Dosage: ONE PUFF TWICE DAILY
     Route: 055
  27. NEXIUM [Suspect]
     Active Substance: ESOMEPRAZOLE MAGNESIUM
     Indication: GASTROOESOPHAGEAL REFLUX DISEASE
     Route: 048
  28. PRILOSEC [Suspect]
     Active Substance: OMEPRAZOLE MAGNESIUM
     Indication: GASTROOESOPHAGEAL REFLUX DISEASE
     Route: 048
  29. SEROQUEL XR [Suspect]
     Active Substance: QUETIAPINE FUMARATE
     Indication: BIPOLAR DISORDER
     Dosage: 400.0MG UNKNOWN
     Route: 048
     Dates: start: 2012
  30. CELEXA [Concomitant]
     Active Substance: CITALOPRAM HYDROBROMIDE
     Indication: BIPOLAR DISORDER
     Dosage: GENERIC CITALOPRAM TABLETS 40 MG DAILY
     Route: 048
  31. SYNTHROID [Concomitant]
     Active Substance: LEVOTHYROXINE SODIUM
     Indication: THYROID DISORDER
     Route: 048
  32. DULCOLAX NOS [Concomitant]
     Active Substance: BISACODYL OR DOCUSATE SODIUM
     Indication: LAXATIVE SUPPORTIVE CARE
     Dosage: 3 PILLS, WEEKLY
  33. XANAX [Concomitant]
     Active Substance: ALPRAZOLAM
     Indication: PANIC ATTACK
     Route: 048
     Dates: start: 2014
  34. SYMBICORT [Suspect]
     Active Substance: BUDESONIDE\FORMOTEROL FUMARATE DIHYDRATE
     Indication: PULMONARY CALCIFICATION
     Dosage: TWO PUFFS TWICE DAILY
     Route: 055
     Dates: start: 2015
  35. NEXIUM [Suspect]
     Active Substance: ESOMEPRAZOLE MAGNESIUM
     Indication: GASTROOESOPHAGEAL REFLUX DISEASE
     Route: 048
  36. SEROQUEL [Suspect]
     Active Substance: QUETIAPINE FUMARATE
     Indication: BIPOLAR DISORDER
     Route: 048
     Dates: start: 1995
  37. CELEXA [Concomitant]
     Active Substance: CITALOPRAM HYDROBROMIDE
     Indication: CEREBRAL DISORDER
     Dates: start: 2006
  38. CELEXA [Concomitant]
     Active Substance: CITALOPRAM HYDROBROMIDE
     Indication: PRODUCT USED FOR UNKNOWN INDICATION
     Dosage: GENERIC CITALOPRAM TABLETS 40 MG DAILY
     Route: 048
  39. SYMBICORT [Suspect]
     Active Substance: BUDESONIDE\FORMOTEROL FUMARATE DIHYDRATE
     Indication: PULMONARY CALCIFICATION
     Dosage: ONE PUFF TWICE DAILY
     Route: 055
  40. SEROQUEL XR [Suspect]
     Active Substance: QUETIAPINE FUMARATE
     Indication: BIPOLAR DISORDER
     Route: 048
     Dates: start: 2006
  41. SEROQUEL XR [Suspect]
     Active Substance: QUETIAPINE FUMARATE
     Indication: BIPOLAR DISORDER
     Dosage: 800.0MG UNKNOWN
     Route: 048
     Dates: start: 2014
  42. SEROQUEL XR [Suspect]
     Active Substance: QUETIAPINE FUMARATE
     Indication: BIPOLAR DISORDER
     Dosage: 400.0MG UNKNOWN
     Route: 048
  43. CELEXA [Concomitant]
     Active Substance: CITALOPRAM HYDROBROMIDE
     Indication: PRODUCT USED FOR UNKNOWN INDICATION
     Dates: start: 2006
  44. CELEXA [Concomitant]
     Active Substance: CITALOPRAM HYDROBROMIDE
     Indication: BIPOLAR DISORDER
     Dates: start: 2006
  45. SYNTHROID [Concomitant]
     Active Substance: LEVOTHYROXINE SODIUM
     Indication: THYROID DISORDER
  46. CELEBREX [Concomitant]
     Active Substance: CELECOXIB
     Indication: ARTHRITIS
     Route: 048
  47. TRAZODONE [Concomitant]
     Active Substance: TRAZODONE HYDROCHLORIDE
  48. MELATONIN [Concomitant]
     Active Substance: MELATONIN
     Indication: SLEEP DISORDER
     Route: 048
     Dates: start: 201605

REACTIONS (25)
  - Vascular calcification [Unknown]
  - Drug ineffective [Unknown]
  - Breast cancer female [Unknown]
  - Chest pain [Unknown]
  - Dyspepsia [Unknown]
  - Malaise [Unknown]
  - Insomnia [Recovering/Resolving]
  - Intentional product use issue [Unknown]
  - Cardiac disorder [Unknown]
  - Intervertebral disc protrusion [Unknown]
  - Nerve compression [Unknown]
  - Gastrooesophageal reflux disease [Unknown]
  - Osteoarthritis [Unknown]
  - Ankle fracture [Unknown]
  - Fall [Unknown]
  - Cardiac murmur [Unknown]
  - Feeling hot [Unknown]
  - Neuropathy peripheral [Unknown]
  - Panic attack [Unknown]
  - Thyroid disorder [Unknown]
  - Pain [Not Recovered/Not Resolved]
  - Plantar fasciitis [Unknown]
  - Memory impairment [Unknown]
  - Fatigue [Unknown]
  - Drug dose omission [Unknown]

NARRATIVE: CASE EVENT DATE: 2007
